FAERS Safety Report 11669679 (Version 1)
Quarter: 2015Q4

REPORT INFORMATION
  Report Type: Spontaneous
  Country: US (occurrence: US)
  Receive Date: 20151027
  Receipt Date: 20151027
  Transmission Date: 20160304
  Serious: No
  Sender: FDA-Public Use
  Company Number: US-ELI_LILLY_AND_COMPANY-US201003001718

PATIENT
  Sex: Female

DRUGS (2)
  1. BOTOX [Interacting]
     Active Substance: ONABOTULINUMTOXINA
     Indication: MUSCLE TIGHTNESS
     Dosage: UNK, UNKNOWN
  2. FORTEO [Suspect]
     Active Substance: TERIPARATIDE
     Indication: OSTEOPOROSIS
     Dosage: 20 UG, DAILY (1/D)
     Route: 065
     Dates: start: 20100219, end: 20100302

REACTIONS (18)
  - Walking aid user [Unknown]
  - Inhibitory drug interaction [Unknown]
  - Disorientation [Unknown]
  - Pain [Unknown]
  - Paraesthesia [Unknown]
  - Thirst [Unknown]
  - Sudden onset of sleep [Unknown]
  - Tension headache [Not Recovered/Not Resolved]
  - Asthenia [Unknown]
  - Fluid retention [Unknown]
  - Myalgia [Unknown]
  - Muscle tightness [Unknown]
  - Chromaturia [Unknown]
  - Gait disturbance [Unknown]
  - Feeling hot [Unknown]
  - Restless legs syndrome [Unknown]
  - Urinary retention [Unknown]
  - Dyspnoea [Unknown]

NARRATIVE: CASE EVENT DATE: 2010
